APPROVED DRUG PRODUCT: GEFITINIB
Active Ingredient: GEFITINIB
Strength: 250MG
Dosage Form/Route: TABLET;ORAL
Application: A209532 | Product #001
Applicant: APOTEX INC
Approved: Sep 23, 2022 | RLD: No | RS: No | Type: DISCN